FAERS Safety Report 12920806 (Version 1)
Quarter: 2016Q4

REPORT INFORMATION
  Report Type: Spontaneous
  Country: CA (occurrence: US)
  Receive Date: 20161107
  Receipt Date: 20161107
  Transmission Date: 20170207
  Serious: No
  Sender: FDA-Public Use
  Company Number: None

PATIENT
  Age: 34 Year
  Sex: Female
  Weight: 53.55 kg

DRUGS (2)
  1. MOVISSE [Suspect]
     Active Substance: NORETHINDRONE
     Indication: MENSTRUATION IRREGULAR
     Dosage: ?          QUANTITY:28 TABLET(S);?
     Route: 048
     Dates: start: 20161102, end: 20161106
  2. MOVISSE [Suspect]
     Active Substance: NORETHINDRONE
     Indication: OVARIAN CYST
     Dosage: ?          QUANTITY:28 TABLET(S);?
     Route: 048
     Dates: start: 20161102, end: 20161106

REACTIONS (4)
  - Urticaria [None]
  - Pruritus [None]
  - Dyspnoea [None]
  - Tachycardia [None]

NARRATIVE: CASE EVENT DATE: 20161102
